FAERS Safety Report 9497764 (Version 2)
Quarter: 2013Q4

REPORT INFORMATION
  Report Type: Spontaneous
  Country: US (occurrence: None)
  Receive Date: 20130830
  Receipt Date: 20131107
  Transmission Date: 20140711
  Serious: Yes (Hospitalization)
  Sender: FDA-Public Use
  Company Number: 2013-1395

PATIENT
  Age: 67 Year
  Sex: Male

DRUGS (3)
  1. KYPROLIS [Suspect]
     Indication: PRODUCT USED FOR UNKNOWN INDICATION
     Dosage: 1 IN 1 WK
     Dates: start: 201305
  2. METFORMIN (METFORMIN) (METFORMIN) [Concomitant]
  3. DEXAMETHASONE [Concomitant]

REACTIONS (6)
  - Confusional state [None]
  - Alanine aminotransferase increased [None]
  - Blood bilirubin increased [None]
  - Hyperammonaemia [None]
  - Encephalopathy [None]
  - Malignant neoplasm progression [None]
